FAERS Safety Report 13156907 (Version 3)
Quarter: 2017Q1

REPORT INFORMATION
  Report Type: Report from Study
  Country: JP (occurrence: JP)
  Receive Date: 20170127
  Receipt Date: 20170324
  Transmission Date: 20170428
  Serious: Yes (Hospitalization)
  Sender: FDA-Public Use
  Company Number: JP-UCBSA-2016005719

PATIENT
  Age: 69 Year
  Sex: Male
  Weight: 50 kg

DRUGS (22)
  1. CERTOLIZUMAB PEGOL RA [Suspect]
     Active Substance: CERTOLIZUMAB PEGOL
     Indication: RHEUMATOID ARTHRITIS
     Dosage: 400 MG PER DOSE
     Route: 058
     Dates: start: 20140609, end: 20140609
  2. CERTOLIZUMAB PEGOL RA [Suspect]
     Active Substance: CERTOLIZUMAB PEGOL
     Dosage: 200 MG, EV 2 WEEKS(QOW)
     Route: 058
     Dates: start: 20140624, end: 20160804
  3. PREDNISOLONE. [Suspect]
     Active Substance: PREDNISOLONE
     Indication: RHEUMATOID ARTHRITIS
     Dosage: 5 MG DAILY DOSE
     Route: 048
     Dates: end: 20150617
  4. PREDNISOLONE. [Suspect]
     Active Substance: PREDNISOLONE
     Dosage: 4 MG DAILY DOSE
     Route: 048
     Dates: start: 20150730, end: 20150902
  5. PREDNISOLONE. [Suspect]
     Active Substance: PREDNISOLONE
     Dosage: 3 MG DAILY DOSE
     Route: 048
     Dates: start: 20151008, end: 20160531
  6. SENNOSIDE [Concomitant]
     Active Substance: SENNOSIDES
     Indication: PRODUCT USED FOR UNKNOWN INDICATION
     Dosage: 12 MG, UNK
     Route: 048
  7. MIYA-BM [Concomitant]
     Active Substance: CLOSTRIDIUM BUTYRICUM SPORES STRAIN M-55
     Indication: PRODUCT USED FOR UNKNOWN INDICATION
     Dosage: 2 G DAILY
     Route: 048
     Dates: start: 20160224
  8. PROGRAF [Suspect]
     Active Substance: TACROLIMUS\TACROLIMUS ANHYDROUS
     Indication: RHEUMATOID ARTHRITIS
     Dosage: 2 MG DAILY DOSE
     Route: 048
  9. TEPRENONE [Concomitant]
     Active Substance: TEPRENONE
     Indication: PROPHYLAXIS
     Dosage: 100 MG, UNK
     Route: 048
  10. SODIUM RABEPRAZOLE [Concomitant]
     Active Substance: RABEPRAZOLE SODIUM
     Indication: PROPHYLAXIS
     Dosage: 20 MG DAILY
     Route: 048
  11. ZOPICLONE [Concomitant]
     Active Substance: ZOPICLONE
     Indication: PRODUCT USED FOR UNKNOWN INDICATION
     Dosage: 7.5 MG, UNK
     Route: 048
  12. GASCON [Concomitant]
     Active Substance: DIMETHICONE
     Indication: PRODUCT USED FOR UNKNOWN INDICATION
     Dosage: 120 MG, UNK
     Route: 048
  13. PREDNISOLONE. [Suspect]
     Active Substance: PREDNISOLONE
     Dosage: 2.5 MG DAILY
     Route: 048
     Dates: start: 20160601
  14. MAGMITT [Concomitant]
     Active Substance: MAGNESIUM OXIDE
     Indication: PRODUCT USED FOR UNKNOWN INDICATION
     Dosage: 990 MG, UNK
     Route: 048
  15. PREDNISOLONE. [Suspect]
     Active Substance: PREDNISOLONE
     Dosage: 3.5 MG DAILY DOSE
     Route: 048
     Dates: start: 20150903, end: 20151007
  16. BERAPROST SODIUM [Concomitant]
     Active Substance: BERAPROST SODIUM
     Indication: PRODUCT USED FOR UNKNOWN INDICATION
     Dosage: 120
     Route: 048
  17. CALFINA [Concomitant]
     Active Substance: ALFACALCIDOL
     Indication: PROPHYLAXIS
     Dosage: 0.5
     Route: 048
  18. LOXOPROFEN SODIUM [Concomitant]
     Active Substance: LOXOPROFEN SODIUM
     Indication: RHEUMATOID ARTHRITIS
     Dosage: 120 MG, UNK
     Route: 048
     Dates: start: 20160120
  19. BLADDERON [Concomitant]
     Active Substance: FLAVOXATE
     Indication: PRODUCT USED FOR UNKNOWN INDICATION
     Dosage: 600 MG DAILY
     Route: 048
     Dates: start: 20160708
  20. PREDNISOLONE. [Suspect]
     Active Substance: PREDNISOLONE
     Dosage: 4.5 MG DAILY DOSE
     Route: 048
     Dates: start: 20150618, end: 20150729
  21. CELECOX [Concomitant]
     Active Substance: CELECOXIB
     Indication: RHEUMATOID ARTHRITIS
     Dosage: 200 MG, UNK
     Route: 048
     Dates: start: 20160121
  22. BROTIZOLAM [Concomitant]
     Active Substance: BROTIZOLAM
     Indication: PRODUCT USED FOR UNKNOWN INDICATION
     Dosage: 0.25 MG, UNK
     Route: 048

REACTIONS (2)
  - Urinary tract infection [Recovered/Resolved]
  - Pneumonia [Recovered/Resolved]

NARRATIVE: CASE EVENT DATE: 20151216
